FAERS Safety Report 10729257 (Version 1)
Quarter: 2015Q1

REPORT INFORMATION
  Report Type: Spontaneous
  Country: US (occurrence: None)
  Receive Date: 20150120
  Receipt Date: 20150120
  Transmission Date: 20150721
  Serious: Yes (Disabling, Other)
  Sender: FDA-Public Use
  Company Number: None

PATIENT
  Age: 29 Year
  Sex: Male
  Weight: 60 kg

DRUGS (3)
  1. PAXIDEP CR [Suspect]
     Active Substance: PAROXETINE HYDROCHLORIDE
     Indication: ANXIETY
     Dosage: 1 TABLET PER DAY, ONCE DAILY, TAKEN BY MOUTH
     Route: 048
     Dates: start: 20110301, end: 20130901
  2. BENFOTIAMINE\CYANOCOBALAMIN\HYDROXOCOBALAMIN\PYRIDOXINE\THIAMINE [Concomitant]
     Active Substance: BENFOTIAMINE\CYANOCOBALAMIN\HYDROXOCOBALAMIN\PYRIDOXINE\THIAMINE
  3. PAXIDEP CR [Suspect]
     Active Substance: PAROXETINE HYDROCHLORIDE
     Indication: FIBROMYALGIA
     Dosage: 1 TABLET PER DAY, ONCE DAILY, TAKEN BY MOUTH
     Route: 048
     Dates: start: 20110301, end: 20130901

REACTIONS (3)
  - Sexual dysfunction [None]
  - Anorgasmia [None]
  - Ejaculation delayed [None]

NARRATIVE: CASE EVENT DATE: 20130902
